FAERS Safety Report 6276033-X (Version None)
Quarter: 2009Q3

REPORT INFORMATION
  Report Type: 
  Country: None (occurrence: None)
  Receive Date: 20090722
  Receipt Date: 20071009
  Transmission Date: 20100115
  Serious: Yes (Other)
  Sender: FDA-Public Use
  Company Number: US-ASTRAZENECA-2006UW22863

PATIENT
  Age: 597 Month
  Sex: Female
  Weight: 143.8 kg

DRUGS (13)
  1. SEROQUEL [Suspect]
     Indication: INSOMNIA
     Route: 048
     Dates: start: 20030101, end: 20060101
  2. SEROQUEL [Suspect]
     Dosage: 25-50 MG AT NIGHT
     Route: 048
     Dates: start: 20060111
  3. LOTENSIN [Concomitant]
     Dates: start: 20060111
  4. PRILOSEC [Concomitant]
     Dates: start: 20060111
  5. FLEXERIL [Concomitant]
     Route: 048
     Dates: start: 20060111
  6. NAPROSYN [Concomitant]
     Dosage: 500 MG,1 BID PRN
     Dates: start: 20060111
  7. HYDROXYZINE HCL [Concomitant]
     Dosage: 10 MG,1 TID PRN
     Dates: start: 20060111
  8. ZOLOFT [Concomitant]
     Dosage: 50-100 MG,EVERY DAY
     Dates: start: 20060111
  9. HYDROCHLOROTHIAZIDE [Concomitant]
     Dates: start: 20060111
  10. PREDNISONE [Concomitant]
     Dosage: 10-40 MG DAILY
     Dates: start: 20060506
  11. LOVASTATIN [Concomitant]
     Dates: start: 20060506
  12. CITALOPRAM HYDROBROMIDE [Concomitant]
     Dates: start: 20060506
  13. PERCOCET [Concomitant]
     Dosage: 5/325, 1-2 TABS EVERY 6 H AS NEEDED
     Dates: start: 20060506

REACTIONS (6)
  - DIABETES MELLITUS [None]
  - DIABETES MELLITUS INADEQUATE CONTROL [None]
  - DIABETIC NEPHROPATHY [None]
  - DIABETIC NEUROPATHY [None]
  - DIABETIC RETINOPATHY [None]
  - MULTIPLE INJURIES [None]
